FAERS Safety Report 19854340 (Version 1)
Quarter: 2021Q3

REPORT INFORMATION
  Report Type: Spontaneous
  Country: CO (occurrence: CO)
  Receive Date: 20210920
  Receipt Date: 20210920
  Transmission Date: 20211014
  Serious: Yes (Hospitalization, Other)
  Sender: FDA-Public Use
  Company Number: CO-LUPIN PHARMACEUTICALS INC.-2021-17750

PATIENT
  Age: 16 Day
  Weight: 3.3 kg

DRUGS (5)
  1. AMPICILLIN [Suspect]
     Active Substance: AMPICILLIN
     Indication: ESCHERICHIA BACTERAEMIA
     Dosage: UNK
     Route: 065
     Dates: start: 2017
  2. VANCOMYCIN [Suspect]
     Active Substance: VANCOMYCIN
     Indication: ESCHERICHIA BACTERAEMIA
     Dosage: UNK
     Route: 065
     Dates: start: 2017
  3. AMIKACIN. [Suspect]
     Active Substance: AMIKACIN
     Indication: ESCHERICHIA BACTERAEMIA
     Dosage: UNK
     Route: 065
     Dates: start: 2017
  4. PIPERACILLIN/TAZOBACTAM [Suspect]
     Active Substance: PIPERACILLIN SODIUM\TAZOBACTAM SODIUM
     Indication: ESCHERICHIA BACTERAEMIA
     Dosage: UNK
     Route: 065
     Dates: start: 2017
  5. MEROPENEM. [Suspect]
     Active Substance: MEROPENEM
     Indication: ESCHERICHIA BACTERAEMIA
     Dosage: UNK
     Route: 065
     Dates: start: 2017

REACTIONS (3)
  - Systemic candida [Recovering/Resolving]
  - Candida infection [Recovering/Resolving]
  - Neonatal candida infection [Recovering/Resolving]

NARRATIVE: CASE EVENT DATE: 20170305
